FAERS Safety Report 8283312-3 (Version None)
Quarter: 2012Q2

REPORT INFORMATION
  Report Type: 
  Country: None (occurrence: None)
  Receive Date: 20120413
  Receipt Date: 20120410
  Transmission Date: 20120825
  Serious: Yes (Death)
  Sender: FDA-Public Use
  Company Number: US-ELI_LILLY_AND_COMPANY-US201204003176

PATIENT
  Age: 50 Year
  Sex: Male

DRUGS (3)
  1. ALIMTA [Suspect]
     Indication: NON-SMALL CELL LUNG CANCER STAGE IV
     Dosage: UNK, UNKNOWN
  2. CARBOPLATIN [Concomitant]
  3. AVASTIN [Concomitant]

REACTIONS (1)
  - THROMBOCYTOPENIA [None]
